FAERS Safety Report 13790647 (Version 1)
Quarter: 2017Q3

REPORT INFORMATION
  Report Type: Report from Study
  Country: US (occurrence: US)
  Receive Date: 20170725
  Receipt Date: 20170725
  Transmission Date: 20171127
  Serious: Yes (Hospitalization, Other)
  Sender: FDA-Public Use
  Company Number: US-GILEAD-2017-0284236

PATIENT
  Sex: Male

DRUGS (1)
  1. RANOLAZINE. [Suspect]
     Active Substance: RANOLAZINE
     Indication: ANGINA PECTORIS
     Dosage: 1000 MG, UNK
     Route: 048

REACTIONS (8)
  - Leukaemia [Not Recovered/Not Resolved]
  - Product use issue [Recovered/Resolved]
  - Catheterisation cardiac [Unknown]
  - Frequent bowel movements [Unknown]
  - Dysuria [Unknown]
  - Intentional product misuse [Unknown]
  - Stent placement [Unknown]
  - Pain [Unknown]

NARRATIVE: CASE EVENT DATE: 2012
